FAERS Safety Report 8915793 (Version 1)
Quarter: 2012Q4

REPORT INFORMATION
  Report Type: 
  Country: SE (occurrence: SE)
  Receive Date: 20121119
  Receipt Date: 20121119
  Transmission Date: 20130627
  Serious: Yes (Hospitalization)
  Sender: FDA-Public Use
  Company Number: SE-PFIZER INC-2012284618

PATIENT
  Age: 85 Year
  Sex: Male
  Weight: 85 kg

DRUGS (7)
  1. GENOTROPIN [Suspect]
     Dosage: 0.27 mg, 1x/day,7 injections/week
     Route: 058
     Dates: start: 19980914
  2. AMLODIPINE [Concomitant]
     Indication: HYPERTENSION
     Dosage: UNK
     Dates: start: 20090101
  3. HYDROCORTONE [Concomitant]
     Indication: ADRENAL CORTICAL HYPOFUNCTION
     Dosage: UNK
     Dates: start: 20090101
  4. LEVAXIN [Concomitant]
     Indication: HYPOTHYROIDISM
     Dosage: UNK
     Dates: start: 20090101
  5. LISINOPRIL [Concomitant]
     Indication: HYPERTENSION
     Dosage: UNK
     Dates: start: 20090101
  6. SIMVASTATIN [Concomitant]
     Indication: HYPERLIPIDEMIA
     Dosage: UNK
     Dates: start: 20090101
  7. NEBIDO [Concomitant]
     Indication: HYPOGONADISM
     Dosage: UNK
     Dates: start: 20090101, end: 20090902

REACTIONS (1)
  - Prostatic disorder [Unknown]
